FAERS Safety Report 11482638 (Version 1)
Quarter: 2015Q3

REPORT INFORMATION
  Report Type: Spontaneous
  Country: US (occurrence: US)
  Receive Date: 20150909
  Receipt Date: 20150909
  Transmission Date: 20151125
  Serious: No
  Sender: FDA-Public Use
  Company Number: US-JAZZ-2015-US-001895

PATIENT
  Age: 47 Year
  Sex: Female
  Weight: 72.56 kg

DRUGS (4)
  1. XYREM [Suspect]
     Active Substance: SODIUM OXYBATE
     Indication: CATAPLEXY
     Dosage: 2.25 G, BID
     Route: 048
     Dates: start: 20150205
  2. CLARITIN [Concomitant]
     Active Substance: LORATADINE
     Indication: SINUSITIS
     Dosage: 10 MG, QD
     Route: 048
     Dates: start: 20150204
  3. XYREM [Suspect]
     Active Substance: SODIUM OXYBATE
     Indication: NARCOLEPSY
  4. OMNICEF [Suspect]
     Active Substance: CEFDINIR
     Indication: SINUSITIS

REACTIONS (2)
  - Clostridium difficile infection [Recovered/Resolved]
  - Diarrhoea [Recovered/Resolved]

NARRATIVE: CASE EVENT DATE: 201502
